FAERS Safety Report 16042970 (Version 1)
Quarter: 2019Q1

REPORT INFORMATION
  Report Type: Spontaneous
  Country: IT (occurrence: IT)
  Receive Date: 20190306
  Receipt Date: 20190306
  Transmission Date: 20190418
  Serious: Yes (Other)
  Sender: FDA-Public Use
  Company Number: IT-MYLANLABS-2019M1020335

PATIENT
  Age: 78 Year
  Sex: Female

DRUGS (5)
  1. MICARDISPLUS [Concomitant]
     Active Substance: HYDROCHLOROTHIAZIDE\TELMISARTAN
  2. PANTOPRAZOLE [Concomitant]
     Active Substance: PANTOPRAZOLE
  3. AMIODARONE [Suspect]
     Active Substance: AMIODARONE
     Indication: PALPITATIONS
     Dosage: 2 DOSAGE FORM, QD
     Route: 048
     Dates: start: 20180605, end: 20180719
  4. EUTIROX [Concomitant]
     Active Substance: LEVOTHYROXINE SODIUM
  5. ELIQUIS [Concomitant]
     Active Substance: APIXABAN
     Dosage: 2 DOSAGE FORM

REACTIONS (4)
  - Nausea [Recovering/Resolving]
  - Sleep disorder [Recovering/Resolving]
  - Bradycardia [Recovering/Resolving]
  - Diarrhoea [Recovering/Resolving]

NARRATIVE: CASE EVENT DATE: 20180719
